FAERS Safety Report 22135514 (Version 1)
Quarter: 2023Q1

REPORT INFORMATION
  Report Type: Spontaneous
  Country: US (occurrence: US)
  Receive Date: 20230324
  Receipt Date: 20230324
  Transmission Date: 20230418
  Serious: No
  Sender: FDA-Public Use
  Company Number: US-MYLANLABS-2023M1028722

PATIENT
  Sex: Male

DRUGS (1)
  1. SEMGLEE (INSULIN GLARGINE-YFGN) [Suspect]
     Active Substance: INSULIN GLARGINE-YFGN
     Indication: Type 2 diabetes mellitus
     Dosage: 25 INTERNATIONAL UNIT, QD
     Route: 058
     Dates: start: 20230210

REACTIONS (5)
  - Wrong technique in product usage process [Unknown]
  - Device mechanical issue [Unknown]
  - Device breakage [Unknown]
  - Device delivery system issue [Unknown]
  - Product quality issue [Unknown]
